FAERS Safety Report 4380910-4 (Version None)
Quarter: 2004Q2

REPORT INFORMATION
  Report Type: 
  Country: None (occurrence: None)
  Receive Date: 20040616
  Receipt Date: 20040603
  Transmission Date: 20050107
  Serious: Yes (Hospitalization)
  Sender: FDA-Public Use
  Company Number: 2004218469DE

PATIENT
  Sex: Female

DRUGS (1)
  1. MINOXIDIL [Suspect]
     Dosage: TOPICAL
     Route: 061

REACTIONS (3)
  - BLOOD PRESSURE DECREASED [None]
  - PERIPHERAL VASCULAR DISORDER [None]
  - TACHYCARDIA [None]
